FAERS Safety Report 23225118 (Version 2)
Quarter: 2023Q4

REPORT INFORMATION
  Report Type: Spontaneous
  Country: US (occurrence: US)
  Receive Date: 20231124
  Receipt Date: 20231127
  Transmission Date: 20240109
  Serious: No
  Sender: FDA-Public Use
  Company Number: US-ELI_LILLY_AND_COMPANY-US202311013177

PATIENT

DRUGS (3)
  1. CYMBALTA [Interacting]
     Active Substance: DULOXETINE HYDROCHLORIDE
     Indication: Product used for unknown indication
     Dosage: 60 MG, UNKNOWN
     Route: 048
  2. CYMBALTA [Interacting]
     Active Substance: DULOXETINE HYDROCHLORIDE
     Dosage: 20 MG, UNKNOWN
     Route: 048
  3. CAPLYTA [Interacting]
     Active Substance: LUMATEPERONE
     Indication: Product used for unknown indication
     Dosage: 42 MG, UNKNOWN
     Route: 065

REACTIONS (3)
  - Drug interaction [Unknown]
  - Anger [Unknown]
  - Agitation [Unknown]
